FAERS Safety Report 10860817 (Version 3)
Quarter: 2015Q2

REPORT INFORMATION
  Report Type: Spontaneous
  Country: US (occurrence: US)
  Receive Date: 20150224
  Receipt Date: 20150513
  Transmission Date: 20150821
  Serious: No
  Sender: FDA-Public Use
  Company Number: US-GLAXOSMITHKLINE-US2015GSK024017

PATIENT
  Sex: Male

DRUGS (2)
  1. VOTRIENT [Suspect]
     Active Substance: PAZOPANIB HYDROCHLORIDE
     Dosage: 800 MG, QD
  2. VOTRIENT [Suspect]
     Active Substance: PAZOPANIB HYDROCHLORIDE
     Indication: RENAL CANCER
     Dosage: 800 MG, QD
     Dates: start: 20150130

REACTIONS (10)
  - Oral pain [Not Recovered/Not Resolved]
  - Nausea [Not Recovered/Not Resolved]
  - Skin abrasion [Unknown]
  - Abdominal discomfort [Unknown]
  - Glossodynia [Recovering/Resolving]
  - Off label use [Unknown]
  - Dysgeusia [Unknown]
  - Dry skin [Unknown]
  - Diarrhoea [Unknown]
  - Stomatitis [Not Recovered/Not Resolved]

NARRATIVE: CASE EVENT DATE: 2015
